FAERS Safety Report 10376184 (Version 1)
Quarter: 2014Q3

REPORT INFORMATION
  Report Type: Spontaneous
  Country: US (occurrence: US)
  Receive Date: 20140811
  Receipt Date: 20140811
  Transmission Date: 20150326
  Serious: No
  Sender: FDA-Public Use
  Company Number: US-ASTRAZENECA-2014SE18036

PATIENT
  Sex: Male

DRUGS (3)
  1. ANASTRAZOLE [Suspect]
     Active Substance: ANASTROZOLE
     Indication: BLOOD OESTROGEN ABNORMAL
     Route: 048
  2. NOT OFFERED [Concomitant]
  3. ANASTRAZOLE [Suspect]
     Active Substance: ANASTROZOLE
     Indication: BLOOD OESTROGEN ABNORMAL
     Route: 048

REACTIONS (3)
  - Adverse event [Unknown]
  - Off label use [Unknown]
  - Abdominal distension [Recovering/Resolving]
